FAERS Safety Report 13272016 (Version 1)
Quarter: 2017Q1

REPORT INFORMATION
  Report Type: Spontaneous
  Country: US (occurrence: US)
  Receive Date: 20170224
  Receipt Date: 20170224
  Transmission Date: 20170428
  Serious: No
  Sender: FDA-Public Use
  Company Number: None

PATIENT
  Age: 59 Year
  Sex: Male
  Weight: 126.9 kg

DRUGS (14)
  1. METFORMIN [Concomitant]
     Active Substance: METFORMIN HYDROCHLORIDE
  2. FARCIXGA [Concomitant]
  3. ZINC. [Concomitant]
     Active Substance: ZINC
  4. ARMODAFINIL. [Suspect]
     Active Substance: ARMODAFINIL
     Indication: SLEEP APNOEA SYNDROME
     Dosage: ?          QUANTITY:30 TABLET(S);?
     Route: 048
     Dates: start: 20170222, end: 20170224
  5. LASSIC [Concomitant]
  6. VIT B [Concomitant]
     Active Substance: VITAMIN B
  7. FONDAPARINOX [Concomitant]
  8. MAGNESIUM [Concomitant]
     Active Substance: MAGNESIUM
  9. NAISPAN [Concomitant]
  10. SERRAPEPTASE [Concomitant]
     Active Substance: SERRAPEPTASE
  11. RESVERATROL [Concomitant]
     Active Substance: RESVERATROL
  12. VITAMIN B12 [Concomitant]
     Active Substance: CYANOCOBALAMIN
  13. PAIN MEDS [Concomitant]
     Active Substance: UNSPECIFIED INGREDIENT
  14. THYROID [Concomitant]
     Active Substance: LEVOTHYROXINE\LIOTHYRONINE

REACTIONS (3)
  - Product substitution issue [None]
  - Nausea [None]
  - Head discomfort [None]

NARRATIVE: CASE EVENT DATE: 20170224
